FAERS Safety Report 5804626-X (Version None)
Quarter: 2008Q3

REPORT INFORMATION
  Report Type: 
  Country: None (occurrence: None)
  Receive Date: 20080702
  Receipt Date: 20080425
  Transmission Date: 20090109
  Serious: Yes (Other)
  Sender: FDA-Public Use
  Company Number: 560970

PATIENT
  Age: 2 Year
  Sex: Female
  Weight: 12.7 kg

DRUGS (1)
  1. KLONOPIN [Suspect]
     Indication: DRUG USE FOR UNKNOWN INDICATION
     Dates: start: 20080424, end: 20080424

REACTIONS (6)
  - ACCIDENTAL OVERDOSE [None]
  - DYSSTASIA [None]
  - GAIT DISTURBANCE [None]
  - INSOMNIA [None]
  - IRRITABILITY [None]
  - MYDRIASIS [None]
